FAERS Safety Report 5265272-2 (Version None)
Quarter: 2007Q1

REPORT INFORMATION
  Report Type: 
  Country: None (occurrence: None)
  Receive Date: 20061213
  Receipt Date: 20040629
  Transmission Date: 20070707
  Serious: Yes (Other)
  Sender: FDA-Public Use
  Company Number: 2004UW13501

PATIENT
  Age: 64 Year
  Sex: Female
  Weight: 74.8435 kg

DRUGS (8)
  1. IRESSA [Suspect]
     Indication: NON-SMALL CELL LUNG CANCER
     Dosage: 250 MG PO
     Route: 048
     Dates: start: 20040301
  2. NORVASC [Concomitant]
  3. METOPROLOL SUCCINATE [Concomitant]
  4. HYDROCHLOROTHIAZIDE [Concomitant]
  5. BENICAR [Concomitant]
  6. XANAX [Concomitant]
  7. ECOTRIN [Concomitant]
  8. CENTRUM [Concomitant]

REACTIONS (3)
  - PRURITUS [None]
  - RASH [None]
  - SKIN DISCOLOURATION [None]
